FAERS Safety Report 24986899 (Version 2)
Quarter: 2025Q2

REPORT INFORMATION
  Report Type: Report from Study
  Country: US (occurrence: US)
  Receive Date: 20250219
  Receipt Date: 20250515
  Transmission Date: 20250717
  Serious: Yes (Death, Hospitalization, Other)
  Sender: ARDELYX
  Company Number: US-ARDELYX-2025ARDX000860

PATIENT
  Sex: Female

DRUGS (2)
  1. XPHOZAH [Suspect]
     Active Substance: TENAPANOR HYDROCHLORIDE
     Indication: Product used for unknown indication
     Route: 065
     Dates: start: 2024
  2. UNSPECIFIED INGREDIENT [Concomitant]
     Active Substance: UNSPECIFIED INGREDIENT
     Indication: Diuretic therapy
     Route: 065

REACTIONS (3)
  - Renal failure [Fatal]
  - Intestinal obstruction [Fatal]
  - Breast cancer [Unknown]

NARRATIVE: CASE EVENT DATE: 20240101
